FAERS Safety Report 8077799-9 (Version None)
Quarter: 2012Q1

REPORT INFORMATION
  Report Type: 
  Country: None (occurrence: None)
  Receive Date: 20120127
  Receipt Date: 20120122
  Transmission Date: 20120608
  Serious: Yes (Other)
  Sender: FDA-Public Use
  Company Number: CZ-PFIZER INC-2012001937

PATIENT
  Sex: Female

DRUGS (6)
  1. GODASAL [Concomitant]
     Dosage: 100 UNK, UNK
  2. VALSARTAN [Concomitant]
     Dosage: 160 UNK, UNK
  3. XALATAN [Suspect]
     Indication: OPEN ANGLE GLAUCOMA
     Dosage: 1 GTT IN BOTH EYES, 1X/DAY
     Route: 047
     Dates: start: 20111201
  4. TRAZODONE HCL [Concomitant]
     Dosage: 100 UNK, UNK
  5. ROSUCARD [Concomitant]
     Dosage: 10 UNK, UNK
  6. PROPANORM [Concomitant]
     Dosage: 150 UNK, UNK

REACTIONS (7)
  - DRUG INEFFECTIVE [None]
  - EYELID OEDEMA [None]
  - EYE IRRITATION [None]
  - OCULAR HYPERAEMIA [None]
  - CONJUNCTIVAL HYPERAEMIA [None]
  - EYE PAIN [None]
  - DARK CIRCLES UNDER EYES [None]
